FAERS Safety Report 18824831 (Version 3)
Quarter: 2021Q2

REPORT INFORMATION
  Report Type: Other
  Country: PL (occurrence: PL)
  Receive Date: 20210202
  Receipt Date: 20210408
  Transmission Date: 20210717
  Serious: Yes (Hospitalization)
  Sender: FDA-Public Use
  Company Number: PL-ROCHE-2761879

PATIENT
  Age: 22 Year
  Sex: Female

DRUGS (1)
  1. RITUXIMAB. [Suspect]
     Active Substance: RITUXIMAB
     Indication: SUSAC^S SYNDROME
     Route: 065

REACTIONS (3)
  - Off label use [Unknown]
  - Nephropathy [Unknown]
  - Renal disorder [Unknown]
